FAERS Safety Report 4906727-7 (Version None)
Quarter: 2006Q1

REPORT INFORMATION
  Report Type: 
  Country: None (occurrence: None)
  Receive Date: 20060206
  Receipt Date: 20060201
  Transmission Date: 20060701
  Serious: Yes (Other)
  Sender: FDA-Public Use
  Company Number: 006562

PATIENT
  Sex: Female

DRUGS (4)
  1. CENESTIN [Suspect]
     Dosage: ORAL
     Route: 048
  2. FEMHRT [Suspect]
     Dosage: ORAL
     Route: 048
  3. PREMARIN [Suspect]
     Dosage: ORAL
     Route: 048
  4. PROMETRIUM [Suspect]
     Dosage: ORAL
     Route: 048

REACTIONS (2)
  - NEOPLASM MALIGNANT [None]
  - NEOPLASM PROGRESSION [None]
